FAERS Safety Report 18307559 (Version 1)
Quarter: 2020Q3

REPORT INFORMATION
  Report Type: Spontaneous
  Country: AR (occurrence: AR)
  Receive Date: 20200924
  Receipt Date: 20200924
  Transmission Date: 20201103
  Serious: Yes (Other)
  Sender: FDA-Public Use
  Company Number: AR-PFIZER INC-2020366765

PATIENT
  Age: 10 Year
  Sex: Female

DRUGS (1)
  1. GENOTROPIN [Suspect]
     Active Substance: SOMATROPIN
     Indication: TURNER^S SYNDROME
     Dosage: 1 ?1.4 MG 6X/WEEK
     Dates: start: 20140512

REACTIONS (1)
  - SARS-CoV-2 test positive [Unknown]

NARRATIVE: CASE EVENT DATE: 202009
